FAERS Safety Report 4451997-5 (Version None)
Quarter: 2004Q3

REPORT INFORMATION
  Report Type: 
  Country: None (occurrence: None)
  Receive Date: 20040915
  Receipt Date: 20040915
  Transmission Date: 20050211
  Serious: Yes (Hospitalization)
  Sender: FDA-Public Use
  Company Number: None

PATIENT
  Sex: Female
  Weight: 70.3075 kg

DRUGS (15)
  1. DURAGESIC [Suspect]
     Indication: PAIN
     Dosage: TOPICAL Q72 H  PRIOR TO ADMISSION
     Route: 061
  2. VASOTEC [Concomitant]
  3. CLONIDINE HCL [Concomitant]
  4. TOPROL-XL [Concomitant]
  5. K-DUR 10 [Concomitant]
  6. REMERON [Concomitant]
  7. EPOGEN [Concomitant]
  8. NPH INSULIN [Concomitant]
  9. VIT C [Concomitant]
  10. SENOKOT [Concomitant]
  11. XANAX [Concomitant]
  12. PRILOSEC [Concomitant]
  13. ZINC [Concomitant]
  14. CELLCEPT [Concomitant]
  15. PREDNISONE [Concomitant]

REACTIONS (1)
  - PRURITUS [None]
